FAERS Safety Report 7690634-3 (Version None)
Quarter: 2011Q3

REPORT INFORMATION
  Report Type: 
  Country: None (occurrence: None)
  Receive Date: 20110818
  Receipt Date: 20110810
  Transmission Date: 20111222
  Serious: Yes (Other)
  Sender: FDA-Public Use
  Company Number: US-JNJFOC-20110806671

PATIENT
  Sex: Male
  Weight: 104.33 kg

DRUGS (9)
  1. HYDROCODONE [Concomitant]
     Indication: PAIN
     Dosage: 10-325 MG AS NEEDED UPTO 4 TIMES A DAY
     Route: 048
     Dates: start: 20060101, end: 20110803
  2. CYMBALTA [Concomitant]
     Indication: NEURALGIA
     Route: 048
     Dates: start: 20070101
  3. AMITRIPTYLINE HCL [Concomitant]
     Indication: DEPRESSION
     Route: 065
     Dates: start: 20070101
  4. UNKNOWN MEDICATION [Concomitant]
     Indication: PROSTATIC DISORDER
     Route: 065
  5. KADIAN [Concomitant]
     Indication: PAIN
     Route: 048
     Dates: end: 20110803
  6. NUCYNTA [Suspect]
     Indication: PAIN
     Route: 048
     Dates: start: 20110804
  7. SKELAXIN [Concomitant]
     Indication: MUSCLE RELAXANT THERAPY
     Route: 065
     Dates: start: 20070101
  8. CYMBALTA [Concomitant]
     Indication: DEPRESSION
     Route: 048
     Dates: start: 20070101
  9. VALIUM [Concomitant]
     Indication: MUSCLE DISORDER
     Route: 048
     Dates: start: 20070101

REACTIONS (3)
  - TRAUMATIC LUNG INJURY [None]
  - ROAD TRAFFIC ACCIDENT [None]
  - AMNESIA [None]
